FAERS Safety Report 6917630-5 (Version None)
Quarter: 2010Q3

REPORT INFORMATION
  Report Type: 
  Country: None (occurrence: None)
  Receive Date: 20100810
  Receipt Date: 20100729
  Transmission Date: 20110219
  Serious: Yes (Hospitalization)
  Sender: FDA-Public Use
  Company Number: JP-PFIZER INC-2010095771

PATIENT
  Age: 51 Year
  Sex: Female

DRUGS (4)
  1. FARMORUBICIN [Suspect]
     Indication: BREAST CANCER
     Dosage: UNK
  2. FLUOROURACIL [Suspect]
     Indication: BREAST CANCER
     Dosage: UNK
  3. CYCLOPHOSPHAMIDE [Suspect]
     Indication: BREAST CANCER
     Dosage: UNK
  4. PACLITAXEL [Suspect]
     Indication: BREAST CANCER
     Dosage: WEEKLY

REACTIONS (2)
  - INTERSTITIAL LUNG DISEASE [None]
  - PNEUMOCYSTIS JIROVECI PNEUMONIA [None]
